FAERS Safety Report 4847164-3 (Version None)
Quarter: 2005Q4

REPORT INFORMATION
  Report Type: 
  Country: None (occurrence: None)
  Receive Date: 20051205
  Receipt Date: 20051201
  Transmission Date: 20060501
  Serious: Yes (Other)
  Sender: FDA-Public Use
  Company Number: S05-USA-04662-01

PATIENT
  Age: 26 Year
  Sex: Female

DRUGS (2)
  1. CELEXA [Suspect]
     Indication: PANIC ATTACK
     Dosage: 20 MG QD PO
     Route: 048
     Dates: start: 20031101, end: 20031101
  2. XANAX [Concomitant]

REACTIONS (3)
  - DRUG EXPOSURE DURING PREGNANCY [None]
  - PREGNANCY [None]
  - PREMATURE LABOUR [None]
